FAERS Safety Report 16010473 (Version 1)
Quarter: 2019Q1

REPORT INFORMATION
  Report Type: Other
  Country: DE (occurrence: DE)
  Receive Date: 20190227
  Receipt Date: 20190227
  Transmission Date: 20190418
  Serious: Yes (Hospitalization, Other)
  Sender: FDA-Public Use
  Company Number: DE-MACLEODS PHARMACEUTICALS US LTD-MAC2019020218

PATIENT

DRUGS (7)
  1. QUETIAPINE 200MG TABLET [Suspect]
     Active Substance: QUETIAPINE
     Indication: WRONG DRUG
     Dosage: 200 MILLIGRAM
     Route: 048
     Dates: start: 20180715, end: 20180715
  2. PIPAMPERON [Concomitant]
     Active Substance: PIPAMPERONE HYDROCHLORIDE
     Indication: PRODUCT USED FOR UNKNOWN INDICATION
     Dosage: 120 MILLIGRAM, QD
     Route: 048
  3. RISPERIDONE. [Concomitant]
     Active Substance: RISPERIDONE
     Indication: PRODUCT USED FOR UNKNOWN INDICATION
     Dosage: 3 MILLIGRAM, QD, DRUG NOT ADMINISTERED
     Route: 048
  4. ARIPIPRAZOLE 5MG TABLET [Suspect]
     Active Substance: ARIPIPRAZOLE
     Indication: WRONG DRUG
     Dosage: 5 MILLIGRAM, TAKING ABOUT 8:45 A.M.
     Route: 048
     Dates: start: 20180715, end: 20180715
  5. RISPERIDONE. [Suspect]
     Active Substance: RISPERIDONE
     Indication: WRONG DRUG
     Dosage: 3 MILLIGRAM, TAKING ABOUT 8:45 A.M.
     Route: 048
     Dates: start: 20180715, end: 20180715
  6. BELLADONNA TINCTURE [Concomitant]
     Active Substance: BELLADONNA LEAF\HOMEOPATHICS
     Indication: PRODUCT USED FOR UNKNOWN INDICATION
     Dosage: 27 DROP, QD, DAILY DOSE: 27 GTT DROP(S) EVERY DAYS DRUG NOT ADMINISTERED
     Route: 048
  7. ZUCLOPENTHIXOL HYDROCHLORIDE [Concomitant]
     Active Substance: ZUCLOPENTHIXOL HYDROCHLORIDE
     Indication: PRODUCT USED FOR UNKNOWN INDICATION
     Dosage: 24 DROP, QD, DRUG NOT ADMINISTERED
     Route: 048

REACTIONS (4)
  - Wrong product administered [Recovered/Resolved]
  - Seizure [Recovered/Resolved]
  - Product administration error [Recovered/Resolved]
  - Product dose omission [Recovered/Resolved]

NARRATIVE: CASE EVENT DATE: 20180715
